FAERS Safety Report 7318060-7 (Version None)
Quarter: 2011Q1

REPORT INFORMATION
  Report Type: 
  Country: None (occurrence: None)
  Receive Date: 20110228
  Receipt Date: 20110216
  Transmission Date: 20110831
  Serious: Yes (Hospitalization, Other)
  Sender: FDA-Public Use
  Company Number: FR-BIOGENIDEC-2011BI001644

PATIENT
  Age: 42 Year
  Sex: Female

DRUGS (8)
  1. TOPIRAMATE [Concomitant]
  2. PARACETAMOL [Concomitant]
     Route: 048
  3. VASOBRAL [Concomitant]
     Route: 048
  4. OXYBUTININE [Concomitant]
     Route: 048
  5. PAROXETINE [Concomitant]
     Route: 048
  6. ANTI EPILEPTIC [Concomitant]
  7. TYSABRI [Suspect]
     Indication: MULTIPLE SCLEROSIS
     Route: 042
     Dates: start: 20070704
  8. UVEDOSE [Concomitant]
     Route: 048

REACTIONS (1)
  - BREAST CANCER [None]
